FAERS Safety Report 4421308-X (Version None)
Quarter: 2004Q3

REPORT INFORMATION
  Report Type: 
  Country: None (occurrence: None)
  Receive Date: 20040809
  Receipt Date: 20040706
  Transmission Date: 20050211
  Serious: Yes (Hospitalization)
  Sender: FDA-Public Use
  Company Number: AU-MERCK-0407AUS00022

PATIENT
  Sex: Male

DRUGS (1)
  1. ZOCOR [Suspect]
     Route: 048

REACTIONS (1)
  - NEPHROLITHIASIS [None]
